FAERS Safety Report 15993897 (Version 2)
Quarter: 2019Q1

REPORT INFORMATION
  Report Type: Spontaneous
  Country: JP (occurrence: JP)
  Receive Date: 20190222
  Receipt Date: 20190311
  Transmission Date: 20190418
  Serious: Yes (Other)
  Sender: FDA-Public Use
  Company Number: JP-SAKK-2019SA046976AA

PATIENT
  Age: 78 Year
  Sex: Male

DRUGS (1)
  1. RASURITEK 7.5MG [Suspect]
     Active Substance: RASBURICASE
     Indication: PROPHYLAXIS
     Dosage: APPROXIMATELY 2 TO 3 DAYS
     Route: 041
     Dates: start: 20190212

REACTIONS (2)
  - Haemoptysis [Recovered/Resolved]
  - Pneumonia [Recovered/Resolved]

NARRATIVE: CASE EVENT DATE: 20190210
